FAERS Safety Report 12617874 (Version 1)
Quarter: 2016Q3

REPORT INFORMATION
  Report Type: Spontaneous
  Country: KZ (occurrence: None)
  Receive Date: 20160802
  Receipt Date: 20160802
  Transmission Date: 20161109
  Serious: Yes (Other)
  Sender: FDA-Public Use
  Company Number: None

PATIENT
  Age: 51 Year
  Sex: Male
  Weight: 98 kg

DRUGS (6)
  1. NOCTE [Concomitant]
  2. SAW PALMETTO [Concomitant]
     Active Substance: SAW PALMETTO
  3. LAMOTRIGEN [Concomitant]
  4. PROSTAMOL-UNO [Concomitant]
  5. SISPRES 500, 500 MG (CIPROFLOXACIN) NOBEL [Suspect]
     Active Substance: CIPROFLOXACIN
     Indication: BACTERIAL PROSTATITIS
     Dosage: 14 TABLET(S) ONCE A DAY TAKEN BY MOUTH
     Route: 048
     Dates: start: 20160731, end: 20160801
  6. MIRTAZAPINE. [Concomitant]
     Active Substance: MIRTAZAPINE

REACTIONS (2)
  - Diarrhoea haemorrhagic [None]
  - Abdominal pain upper [None]

NARRATIVE: CASE EVENT DATE: 20160801
